FAERS Safety Report 20566284 (Version 1)
Quarter: 2022Q1

REPORT INFORMATION
  Report Type: Spontaneous
  Country: US (occurrence: US)
  Receive Date: 20220308
  Receipt Date: 20220308
  Transmission Date: 20220423
  Serious: Yes (Death, Hospitalization)
  Sender: FDA-Public Use
  Company Number: US-ADAMAS PHARMA, LLC-2022ADA00484

PATIENT
  Age: 76 Year
  Sex: Female

DRUGS (11)
  1. GOCOVRI [Suspect]
     Active Substance: AMANTADINE
     Indication: Parkinson^s disease
     Dosage: 274 MG, 1X/DAY, AT BEDTIME
     Route: 048
     Dates: start: 20200205, end: 20220210
  2. CALCIUM ANTACID [Concomitant]
     Active Substance: CALCIUM CARBONATE
  3. FISH OIL [Concomitant]
     Active Substance: FISH OIL
  4. RYTARY [Concomitant]
     Active Substance: CARBIDOPA\LEVODOPA
  5. ESCITALOPRAM [Concomitant]
     Active Substance: ESCITALOPRAM OXALATE
  6. VITAMIN D3 [Concomitant]
     Active Substance: CHOLECALCIFEROL
  7. PRASTERONE [Concomitant]
     Active Substance: PRASTERONE
  8. ESTRADIOL [Concomitant]
     Active Substance: ESTRADIOL
  9. PROGESTERONE [Concomitant]
     Active Substance: PROGESTERONE
  10. TESTOSTERONE [Concomitant]
     Active Substance: TESTOSTERONE
  11. AZILECT [Concomitant]
     Active Substance: RASAGILINE MESYLATE

REACTIONS (3)
  - Death [Fatal]
  - Intestinal obstruction [Unknown]
  - Dehydration [Unknown]

NARRATIVE: CASE EVENT DATE: 20220217
